FAERS Safety Report 18248526 (Version 1)
Quarter: 2020Q3

REPORT INFORMATION
  Report Type: Spontaneous
  Country: IN (occurrence: IN)
  Receive Date: 20200909
  Receipt Date: 20200909
  Transmission Date: 20201103
  Serious: Yes (Hospitalization, Other)
  Sender: FDA-Public Use
  Company Number: IN-MACLEODS PHARMACEUTICALS US LTD-MAC2020026736

PATIENT

DRUGS (17)
  1. PYRIDOXINE [Concomitant]
     Active Substance: PYRIDOXINE
     Indication: PULMONARY TUBERCULOSIS
  2. ETHIONAMIDE [Concomitant]
     Active Substance: ETHIONAMIDE
     Indication: TUBERCULOSIS
  3. AMIKACIN. [Concomitant]
     Active Substance: AMIKACIN
     Indication: DISSEMINATED TUBERCULOSIS
     Dosage: 750 MILLIGRAM, QD
     Route: 042
  4. ETHIONAMIDE [Concomitant]
     Active Substance: ETHIONAMIDE
     Indication: DISSEMINATED TUBERCULOSIS
     Dosage: 500 MILLIGRAM, QD
     Route: 065
  5. ISONIAZID. [Concomitant]
     Active Substance: ISONIAZID
     Indication: TUBERCULOSIS
     Dosage: 300 MILLIGRAM, QD
     Route: 065
  6. MOXIFLOXACIN [MOXIFLOXACIN HYDROCHLORIDE] [Suspect]
     Active Substance: MOXIFLOXACIN HYDROCHLORIDE
     Indication: TUBERCULOSIS
  7. ETHAMBUTOL [Concomitant]
     Active Substance: ETHAMBUTOL HYDROCHLORIDE
     Indication: PULMONARY TUBERCULOSIS
  8. PYRIDOXINE [Concomitant]
     Active Substance: PYRIDOXINE
     Indication: DISSEMINATED TUBERCULOSIS
     Dosage: 20 MILLIGRAM, QD
     Route: 065
  9. PYRAZINAMIDE. [Suspect]
     Active Substance: PYRAZINAMIDE
     Indication: PULMONARY TUBERCULOSIS
     Dosage: 1500 MILLIGRAM, QD
     Route: 065
  10. MOXIFLOXACIN [MOXIFLOXACIN HYDROCHLORIDE] [Suspect]
     Active Substance: MOXIFLOXACIN HYDROCHLORIDE
     Indication: DISSEMINATED TUBERCULOSIS
     Dosage: 600 MILLIGRAM, QD
     Route: 048
  11. RIFAMPICIN [Suspect]
     Active Substance: RIFAMPIN
     Indication: PULMONARY TUBERCULOSIS
     Dosage: 600 MILLIGRAM, QD
     Route: 065
  12. PYRIDOXINE [Concomitant]
     Active Substance: PYRIDOXINE
     Indication: TUBERCULOSIS
  13. AMIKACIN. [Concomitant]
     Active Substance: AMIKACIN
     Indication: TUBERCULOSIS
  14. ISONIAZID 300 MG [Suspect]
     Active Substance: ISONIAZID
     Indication: PULMONARY TUBERCULOSIS
     Dosage: 300 MILLIGRAM, QD
     Route: 065
  15. ETHAMBUTOL [Concomitant]
     Active Substance: ETHAMBUTOL HYDROCHLORIDE
     Indication: DISSEMINATED TUBERCULOSIS
     Dosage: 1200 MILLIGRAM, QD
     Route: 065
  16. ETHAMBUTOL [Concomitant]
     Active Substance: ETHAMBUTOL HYDROCHLORIDE
     Indication: TUBERCULOSIS
  17. ISONIAZID. [Concomitant]
     Active Substance: ISONIAZID
     Indication: DISSEMINATED TUBERCULOSIS
     Dosage: UNK
     Route: 065

REACTIONS (2)
  - Toxic encephalopathy [Recovered/Resolved]
  - Drug-induced liver injury [Recovered/Resolved]
